FAERS Safety Report 9312915 (Version 1)
Quarter: 2013Q2

REPORT INFORMATION
  Report Type: Spontaneous
  Country: US (occurrence: US)
  Receive Date: 20130528
  Receipt Date: 20130528
  Transmission Date: 20140414
  Serious: No
  Sender: FDA-Public Use
  Company Number: US-ABBOTT-13P-163-1068905-00

PATIENT
  Sex: Male

DRUGS (2)
  1. ANDROGEL [Suspect]
     Indication: BLOOD TESTOSTERONE DECREASED
     Dosage: 2 PUMPS
     Dates: start: 201211, end: 201302
  2. ANDROGEL [Suspect]
     Dosage: 3 PUMPS
     Dates: start: 201302

REACTIONS (3)
  - Drug administered at inappropriate site [Recovered/Resolved]
  - Blood testosterone decreased [Unknown]
  - Drug administration error [Recovered/Resolved]
